FAERS Safety Report 9058141 (Version 1)
Quarter: 2013Q1

REPORT INFORMATION
  Report Type: Spontaneous
  Country: US (occurrence: None)
  Receive Date: 20130204
  Receipt Date: 20130204
  Transmission Date: 20140127
  Serious: Yes (Hospitalization)
  Sender: FDA-Public Use
  Company Number: None

PATIENT
  Age: 90 Year
  Sex: Male
  Weight: 77.11 kg

DRUGS (1)
  1. METOPROLOL [Suspect]
     Dosage: 4 DAYS AFTER PRESCRIPTION STARTED 25 MG 1 A DAY

REACTIONS (3)
  - Concussion [None]
  - Loss of consciousness [None]
  - Laceration [None]
